FAERS Safety Report 9110974 (Version 1)
Quarter: 2013Q1

REPORT INFORMATION
  Report Type: Spontaneous
  Country: US (occurrence: US)
  Receive Date: 20130219
  Receipt Date: 20130219
  Transmission Date: 20140127
  Serious: No
  Sender: FDA-Public Use
  Company Number: US-BRISTOL-MYERS SQUIBB COMPANY-16975435

PATIENT
  Age: 73 Year
  Sex: Female
  Weight: 67.12 kg

DRUGS (18)
  1. ORENCIA [Suspect]
     Indication: RHEUMATOID ARTHRITIS
     Dosage: RECENT DOSE 14SEP2012?NO OF INF:2
     Route: 042
     Dates: start: 20120907
  2. CALCIUM + VITAMIN D [Concomitant]
  3. FLEXERIL [Concomitant]
  4. VICODIN [Concomitant]
     Dosage: 1DF:5/500 UNITS NOS
  5. ADVIL [Concomitant]
  6. REMICADE [Concomitant]
  7. METHOTREXATE [Concomitant]
     Dosage: 3 PILLS/WEEK
  8. FOLIC ACID [Concomitant]
  9. CALCITONIN [Concomitant]
  10. VITAMIN D [Concomitant]
     Dosage: 20000IU/DAY
  11. PREDNISONE [Concomitant]
  12. HYDROCHLOROTHIAZIDE [Concomitant]
  13. TRAMADOL [Concomitant]
     Dosage: ASNECESSARY
  14. KEFLEX [Concomitant]
  15. FOSAMAX [Concomitant]
  16. ZITHROMAX [Concomitant]
  17. TUSSIONEX [Concomitant]
  18. RECLAST [Concomitant]

REACTIONS (2)
  - Tachycardia [Unknown]
  - Dyspnoea [Unknown]
